FAERS Safety Report 4701444-0 (Version None)
Quarter: 2005Q2

REPORT INFORMATION
  Report Type: 
  Country: None (occurrence: None)
  Receive Date: 20050627
  Receipt Date: 20050614
  Transmission Date: 20051028
  Serious: Yes (Life-Threatening, Hospitalization)
  Sender: FDA-Public Use
  Company Number: VISP-NO-0506S-0337

PATIENT
  Age: 70 Year
  Sex: Female
  Weight: 87 kg

DRUGS (2)
  1. VISIPAQUE [Suspect]
     Indication: STENT PLACEMENT
     Dosage: 200 MG, SINGLE DOSE, I.V.
     Route: 042
     Dates: start: 20050509, end: 20050509
  2. VANCOMYCIN [Concomitant]

REACTIONS (4)
  - POST PROCEDURAL COMPLICATION [None]
  - PULMONARY OEDEMA [None]
  - RENAL FAILURE ACUTE [None]
  - RESPIRATORY ARREST [None]
